FAERS Safety Report 5099934-7 (Version None)
Quarter: 2006Q3

REPORT INFORMATION
  Report Type: 
  Country: None (occurrence: None)
  Receive Date: 20060908
  Receipt Date: 20060905
  Transmission Date: 20061208
  Serious: Yes (Hospitalization)
  Sender: FDA-Public Use
  Company Number: IT-JNJFOC-20060900688

PATIENT
  Age: 45 Year
  Sex: Male
  Weight: 85 kg

DRUGS (3)
  1. ACETAMINOPHEN [Suspect]
     Dosage: MORNING OF ADMISSION
  2. ACETAMINOPHEN [Suspect]
     Indication: PYREXIA
     Dosage: TIMES 4 DAYS
  3. BUPRENORPHINE HCL [Concomitant]
     Indication: DRUG WITHDRAWAL SYNDROME
     Dosage: PRIOR TO ADMISSION

REACTIONS (1)
  - HEPATOTOXICITY [None]
